FAERS Safety Report 15218747 (Version 3)
Quarter: 2018Q3

REPORT INFORMATION
  Report Type: Spontaneous
  Country: BR (occurrence: BR)
  Receive Date: 20180731
  Receipt Date: 20180830
  Transmission Date: 20181010
  Serious: Yes (Other)
  Sender: FDA-Public Use
  Company Number: BR-REGENERON PHARMACEUTICALS, INC.-2018-31069

PATIENT

DRUGS (1)
  1. EYLEA [Suspect]
     Active Substance: AFLIBERCEPT
     Indication: DIABETIC RETINAL OEDEMA
     Dosage: 1 DF, ONCE
     Route: 031
     Dates: start: 2016, end: 2016

REACTIONS (6)
  - Binocular eye movement disorder [Recovered/Resolved]
  - Injection site inflammation [Recovered/Resolved]
  - Ocular procedural complication [Recovered/Resolved]
  - Iridocyclitis [Recovering/Resolving]
  - Eye pain [Recovered/Resolved]
  - Blindness [Recovered/Resolved]

NARRATIVE: CASE EVENT DATE: 2016
